FAERS Safety Report 9580695 (Version 1)
Quarter: 2013Q3

REPORT INFORMATION
  Report Type: Spontaneous
  Country: US (occurrence: None)
  Receive Date: 20130916
  Receipt Date: 20130916
  Transmission Date: 20140515
  Serious: Yes (Other)
  Sender: FDA-Public Use
  Company Number: JPI-P-027076

PATIENT
  Age: 9 Year
  Sex: Female
  Weight: 50.8 kg

DRUGS (2)
  1. XYREM [Suspect]
     Indication: CATAPLEXY
     Dosage: 5GM (2.25GM, 2 IN 1D), ORAL
     Route: 048
     Dates: start: 20121009
  2. AMPHETAMINE, DEXTROAMPHETAMINE MIXED SALTS [Concomitant]

REACTIONS (3)
  - Hallucination, auditory [None]
  - Abnormal dreams [None]
  - Condition aggravated [None]
